FAERS Safety Report 8758181 (Version 2)
Quarter: 2013Q1

REPORT INFORMATION
  Report Type: Report from Study
  Country: FR (occurrence: FR)
  Receive Date: 20120828
  Receipt Date: 20130320
  Transmission Date: 20140127
  Serious: Yes (Hospitalization)
  Sender: FDA-Public Use
  Company Number: FR-VERTEX PHARMACEUTICAL INC.-000000000000000232

PATIENT
  Age: 50 Year
  Sex: Female
  Weight: 51 kg

DRUGS (11)
  1. VX-950 (TELAPREVIR) [Suspect]
     Indication: HEPATITIS C
     Dosage: 2250 MG, QD
     Route: 048
     Dates: start: 20120106
  2. PEGASYS [Suspect]
     Indication: HEPATITIS C
     Dosage: 1 DF, WEEKLY
     Route: 065
     Dates: start: 20111209
  3. COPEGUS [Suspect]
     Indication: HEPATITIS C
     Dosage: 1000 MG, TID
     Route: 065
     Dates: start: 20111209
  4. TRUVADA [Concomitant]
     Indication: HIV INFECTION
     Dosage: 1 DF, QD
     Dates: start: 201104
  5. ISENTRESS [Concomitant]
     Indication: HIV INFECTION
     Dosage: 800 MG, BID
     Dates: start: 201104
  6. METHADONE [Concomitant]
     Indication: DRUG DEPENDENCE
     Dosage: 1 DF, QD
     Dates: start: 1993
  7. EFFEXOR [Concomitant]
     Indication: DEPRESSION
     Dosage: 1 DF, QD
  8. RIVOTRIL [Concomitant]
     Indication: DEPRESSION
     Dosage: 1 DF, QD
  9. NEORECORMON [Concomitant]
     Indication: ANAEMIA
     Dosage: WEEKLY
     Dates: start: 20111209
  10. RISEDRONATE [Concomitant]
     Indication: OSTEOPOROSIS
     Dosage: WEEKLY
     Dates: start: 2007
  11. VITAMIN D [Concomitant]
     Indication: OSTEOPOROSIS
     Dosage: UNK
     Dates: start: 2007

REACTIONS (1)
  - Lower respiratory tract infection bacterial [Recovered/Resolved]
